FAERS Safety Report 6598063-0 (Version None)
Quarter: 2010Q1

REPORT INFORMATION
  Report Type: 
  Country: None (occurrence: None)
  Receive Date: 20100216
  Receipt Date: 20100201
  Transmission Date: 20100710
  Serious: Yes (Hospitalization)
  Sender: FDA-Public Use
  Company Number: 2009030082

PATIENT
  Age: 95 Year
  Sex: Female
  Weight: 63 kg

DRUGS (10)
  1. TORSEMIDE [Suspect]
     Indication: HYPERTENSION
     Dosage: 5 MG (5 MG, 1 IN 1 D), ORAL
     Route: 048
     Dates: start: 20000101
  2. AMLODIPINE [Suspect]
     Indication: HYPERTENSION
     Dosage: 5 MG, (5 MG, 1 IN 1 D), ORAL
     Route: 048
     Dates: start: 20000101, end: 20080901
  3. MOLSICOR (MOLSIDOMINE) [Suspect]
     Indication: HYPERTENSION
     Dosage: 8 MG (8 MG, 1 IN 1 D), ORAL
     Route: 048
     Dates: start: 20040101, end: 20080901
  4. PENTAERYTHIRITOL TETRANITRATE TAB [Suspect]
     Indication: CORONARY ARTERY DISEASE
     Dosage: 160 MG (80 MG, 1 IN 1 D), ORAL
     Route: 048
     Dates: start: 20040101, end: 20080901
  5. MELPERONE (MELPERONE) [Suspect]
     Indication: SLEEP DISORDER
     Dosage: 12.5 MG (12.5 MG, 12.5 MG, AT NIGHT), ORAL
     Route: 048
     Dates: start: 20070101
  6. ASPIRIN [Concomitant]
  7. METHIZOL (THIAMAZOLE) [Concomitant]
  8. PANTOPRAZOLE SODIUM [Concomitant]
  9. TEBONIN (GINKO TREE LEAVES EXTRACT) [Concomitant]
  10. TRAMABETA (TRAMADOL) [Concomitant]

REACTIONS (4)
  - DRUG INTERACTION [None]
  - HYPOTENSION [None]
  - OVERDOSE [None]
  - SYNCOPE [None]
